FAERS Safety Report 4642307-9 (Version None)
Quarter: 2005Q2

REPORT INFORMATION
  Report Type: 
  Country: None (occurrence: None)
  Receive Date: 20050420
  Receipt Date: 20050411
  Transmission Date: 20051028
  Serious: Yes (Hospitalization)
  Sender: FDA-Public Use
  Company Number: 2005AP00500

PATIENT
  Age: 80 Year
  Sex: Male

DRUGS (2)
  1. ZOLADEX [Suspect]
     Indication: PROSTATE CANCER
     Dosage: 10.8 MG Q3MO SQ
     Dates: start: 20040508, end: 20040508
  2. FLIVAS [Suspect]
     Dosage: 50 MG DAILY PO
     Route: 048
     Dates: start: 20040309

REACTIONS (1)
  - INTERSTITIAL LUNG DISEASE [None]
